FAERS Safety Report 5344271-6 (Version None)
Quarter: 2007Q2

REPORT INFORMATION
  Report Type: 
  Country: None (occurrence: None)
  Receive Date: 20070416
  Receipt Date: 20070107
  Transmission Date: 20071010
  Serious: No
  Sender: FDA-Public Use
  Company Number: 2007SP000068

PATIENT
  Age: 68 Year
  Sex: Female
  Weight: 113.3993 kg

DRUGS (4)
  1. LUNESTA [Suspect]
     Indication: INSOMNIA
     Dosage: 3 MG; PRN; ORAL
     Route: 048
     Dates: start: 20070103, end: 20070106
  2. LISINOPRIL [Concomitant]
  3. VYTORIN [Concomitant]
  4. MULTIVITAMIN [Concomitant]

REACTIONS (1)
  - DYSGEUSIA [None]
